FAERS Safety Report 4680898-2 (Version None)
Quarter: 2005Q2

REPORT INFORMATION
  Report Type: 
  Country: None (occurrence: None)
  Receive Date: 20050603
  Receipt Date: 20040825
  Transmission Date: 20051028
  Serious: Yes (Hospitalization)
  Sender: FDA-Public Use
  Company Number: US-AMGEN-KDL088631

PATIENT
  Sex: Male
  Weight: 75.8 kg

DRUGS (14)
  1. PROCRIT [Suspect]
     Indication: RENAL FAILURE CHRONIC
     Route: 058
     Dates: start: 20020901, end: 20041201
  2. ARANESP [Suspect]
     Indication: RENAL FAILURE CHRONIC
     Route: 058
     Dates: start: 20030401
  3. IRON [Concomitant]
     Route: 048
     Dates: start: 20040801
  4. ZOCOR [Concomitant]
  5. HUMIRA [Concomitant]
  6. PREDNISONE [Concomitant]
  7. PREDNISONE [Concomitant]
  8. OXYGEN [Concomitant]
  9. VIOXX [Concomitant]
     Dates: end: 20040801
  10. FLUTICASONE PROPIONATE [Concomitant]
  11. SALMETEROL [Concomitant]
  12. PREVACID [Concomitant]
  13. PLAQUENIL [Concomitant]
  14. SINGULAIR [Concomitant]

REACTIONS (6)
  - IRON DEFICIENCY [None]
  - LYMPHOPENIA [None]
  - NORMOCHROMIC NORMOCYTIC ANAEMIA [None]
  - PANCYTOPENIA [None]
  - THERAPEUTIC RESPONSE DECREASED [None]
  - THROMBOCYTOPENIA [None]
